FAERS Safety Report 23654664 (Version 2)
Quarter: 2024Q3

REPORT INFORMATION
  Report Type: Report from Study
  Country: CL (occurrence: CL)
  Receive Date: 20240320
  Receipt Date: 20240905
  Transmission Date: 20241016
  Serious: Yes (Other)
  Sender: JOHNSON AND JOHNSON
  Company Number: CL-JNJFOC-20240346688

PATIENT
  Age: 65 Year
  Sex: Male

DRUGS (1)
  1. SIMPONI [Suspect]
     Active Substance: GOLIMUMAB
     Indication: Psoriatic arthropathy
     Route: 058
     Dates: start: 20220801

REACTIONS (5)
  - Urinary tract infection [Not Recovered/Not Resolved]
  - Urethral obstruction [Unknown]
  - Bladder operation [Unknown]
  - Nodule [Unknown]
  - Urethral cyst [Unknown]

NARRATIVE: CASE EVENT DATE: 20230101
